FAERS Safety Report 4498579-7 (Version None)
Quarter: 2004Q4

REPORT INFORMATION
  Report Type: 
  Country: None (occurrence: None)
  Receive Date: 20041108
  Receipt Date: 20041029
  Transmission Date: 20050328
  Serious: Yes (Hospitalization)
  Sender: FDA-Public Use
  Company Number: 2004233277US

PATIENT
  Age: 82 Year
  Sex: Male
  Weight: 78.9 kg

DRUGS (3)
  1. DETROL LA [Suspect]
     Indication: HYPERTONIC BLADDER
     Dosage: 2MG, QD, ORAL
     Route: 048
     Dates: start: 20040601
  2. GLYBURIDE [Suspect]
     Indication: DIABETES MELLITUS
     Dates: end: 20040826
  3. FLOMAX [Concomitant]

REACTIONS (7)
  - CATHETER RELATED INFECTION [None]
  - DRUG INEFFECTIVE [None]
  - GASTRIC ULCER [None]
  - HAEMATOCHEZIA [None]
  - HYPOGLYCAEMIA [None]
  - NOCTURIA [None]
  - POLLAKIURIA [None]
